FAERS Safety Report 7589740-3 (Version None)
Quarter: 2011Q3

REPORT INFORMATION
  Report Type: 
  Country: None (occurrence: None)
  Receive Date: 20110705
  Receipt Date: 20110629
  Transmission Date: 20111222
  Serious: Yes (Hospitalization)
  Sender: FDA-Public Use
  Company Number: US-B.I. PHARMACEUTICALS,INC./RIDGEFIELD-2011-BP-16759BP

PATIENT
  Age: 59 Year
  Sex: Male

DRUGS (10)
  1. PRADAXA [Suspect]
     Indication: ATRIAL FIBRILLATION
     Dosage: 300 MG
     Route: 048
     Dates: start: 20110324
  2. METOPROLOL TARTRATE [Concomitant]
     Indication: ATRIAL FIBRILLATION
     Dosage: 25 MG
  3. LISINOPRIL [Concomitant]
     Indication: HYPERTENSION
     Dosage: 20 MG
  4. LIPITOR [Concomitant]
     Indication: BLOOD CHOLESTEROL INCREASED
     Dosage: 40 MG
  5. LORA TAB [Concomitant]
     Indication: MULTIPLE ALLERGIES
  6. AMBIEN [Concomitant]
     Indication: SLEEP DISORDER
  7. HYDROCHLOROTHIAZIDE [Concomitant]
     Dosage: 25 MG
  8. ASPIRIN [Concomitant]
     Dosage: 325 MG
  9. NEURONTIN [Concomitant]
     Dosage: 300 MG
  10. TERAZOSIN HCL [Concomitant]
     Indication: PROSTATOMEGALY

REACTIONS (1)
  - DEEP VEIN THROMBOSIS [None]
